FAERS Safety Report 6957235-3 (Version None)
Quarter: 2010Q3

REPORT INFORMATION
  Report Type: 
  Country: None (occurrence: None)
  Receive Date: 20100826
  Receipt Date: 20100819
  Transmission Date: 20110219
  Serious: Yes (Death)
  Sender: FDA-Public Use
  Company Number: 2010080019

PATIENT
  Age: 72 Year
  Sex: Male

DRUGS (3)
  1. ONSOLIS [Suspect]
     Indication: CANCER PAIN
     Dosage: TITRATED UP TO 4-200 MCG FILMS/DOSE (Q6 HOURS, AS NEEDED), BU
     Route: 002
     Dates: start: 20100803, end: 20100806
  2. OXYCODONE HCL [Concomitant]
  3. OXYCONTIN [Concomitant]

REACTIONS (2)
  - MALIGNANT NEOPLASM PROGRESSION [None]
  - MULTIPLE MYELOMA [None]
